FAERS Safety Report 15053911 (Version 1)
Quarter: 2018Q2

REPORT INFORMATION
  Report Type: Spontaneous
  Country: JP (occurrence: JP)
  Receive Date: 20180622
  Receipt Date: 20180622
  Transmission Date: 20180711
  Serious: Yes (Other)
  Sender: FDA-Public Use
  Company Number: JP-PFIZER INC-2012156370

PATIENT
  Age: 53 Year
  Sex: Male
  Weight: 70 kg

DRUGS (4)
  1. SANDOSTATIN LAR DEPOT [Concomitant]
     Active Substance: OCTREOTIDE ACETATE
     Dosage: 20 MG, MONTHLY
     Dates: end: 2011
  2. SOMAVERT [Suspect]
     Active Substance: PEGVISOMANT
     Indication: ACROMEGALY
     Dosage: 10 MG, 1X/DAY
     Route: 058
     Dates: start: 200807, end: 201205
  3. SOMAVERT [Suspect]
     Active Substance: PEGVISOMANT
     Dosage: 10 MG, 6 TIMES PER WEEK
  4. SANDOSTATIN LAR DEPOT [Concomitant]
     Active Substance: OCTREOTIDE ACETATE
     Dosage: 30 MG, MONTHLY
     Dates: end: 2011

REACTIONS (9)
  - Cachexia [Unknown]
  - Blood growth hormone increased [Unknown]
  - Malaise [Unknown]
  - Gastrointestinal disorder [Unknown]
  - Oedema peripheral [Unknown]
  - Decreased appetite [Unknown]
  - Insulin-like growth factor decreased [Not Recovered/Not Resolved]
  - Protein-losing gastroenteropathy [Unknown]
  - Product use issue [Unknown]

NARRATIVE: CASE EVENT DATE: 2011
